FAERS Safety Report 7259014-9 (Version None)
Quarter: 2011Q1

REPORT INFORMATION
  Report Type: 
  Country: None (occurrence: None)
  Receive Date: 20110129
  Receipt Date: 20100630
  Transmission Date: 20110831
  Serious: Yes (Other)
  Sender: FDA-Public Use
  Company Number: US-ABBOTT-10P-163-0653533-00

PATIENT
  Sex: Female
  Weight: 71.732 kg

DRUGS (13)
  1. AMITRIPTYLINE HCL [Concomitant]
     Indication: DEPRESSION
  2. ISOSORBIDE DINITRATE [Concomitant]
     Indication: HYPERTENSION
  3. PENTASA [Concomitant]
     Indication: PRODUCT USED FOR UNKNOWN INDICATION
     Dosage: 2 QID
  4. PROTONIX [Concomitant]
     Indication: GASTROOESOPHAGEAL REFLUX DISEASE
  5. ZOLPIDEM [Concomitant]
     Indication: PRODUCT USED FOR UNKNOWN INDICATION
  6. ENTOCORT EC [Concomitant]
     Indication: CROHN'S DISEASE
     Dosage: 3 CAPS X 3MG DAILY
  7. PAROXETINE HCL [Concomitant]
     Indication: DEPRESSION
  8. METOPROLOL [Concomitant]
     Indication: HYPERTENSION
  9. PREMARIN [Concomitant]
     Indication: HORMONE REPLACEMENT THERAPY
  10. HUMIRA [Suspect]
     Indication: CROHN'S DISEASE
     Dosage: LOADING DOSE, 4 PENS AT ONCE
     Route: 058
     Dates: start: 20100429
  11. IMODIUM [Concomitant]
     Indication: DIARRHOEA
     Dosage: 3 TABS X 25MG BID
  12. VITAMIN B-12 [Concomitant]
     Indication: PRODUCT USED FOR UNKNOWN INDICATION
  13. XANAX [Concomitant]
     Indication: PRODUCT USED FOR UNKNOWN INDICATION

REACTIONS (9)
  - OESOPHAGEAL STENOSIS [None]
  - SWELLING FACE [None]
  - BLISTER [None]
  - PAIN IN EXTREMITY [None]
  - ORAL PAIN [None]
  - OESOPHAGITIS [None]
  - APHAGIA [None]
  - OEDEMA MOUTH [None]
  - MOUTH ULCERATION [None]
